FAERS Safety Report 15725635 (Version 9)
Quarter: 2019Q1

REPORT INFORMATION
  Report Type: Spontaneous
  Country: ES (occurrence: ES)
  Receive Date: 20181215
  Receipt Date: 20190318
  Transmission Date: 20190417
  Serious: Yes (Other)
  Sender: FDA-Public Use
  Company Number: ES-009507513-1812ESP005885

PATIENT
  Sex: Male
  Weight: .84 kg

DRUGS (5)
  1. TRANDATE [Concomitant]
     Active Substance: LABETALOL HYDROCHLORIDE
     Dosage: UNK
     Route: 064
  2. ADALAT [Concomitant]
     Active Substance: NIFEDIPINE
     Dosage: UNK
     Route: 064
  3. CELESTONE CRONODOSE [Suspect]
     Active Substance: BETAMETHASONE
     Dosage: 12 MILLIGRAM, BID
     Route: 064
  4. TACROLIMUS. [Suspect]
     Active Substance: TACROLIMUS
     Indication: IMMUNOSUPPRESSANT DRUG THERAPY
     Dosage: 5.5 MILLIGRAM, QD
     Route: 064
  5. ASPIRIN. [Concomitant]
     Active Substance: ASPIRIN
     Dosage: UNK
     Route: 064

REACTIONS (6)
  - Neonatal respiratory distress syndrome [Unknown]
  - Low birth weight baby [Unknown]
  - Hypertrophic cardiomyopathy [Recovered/Resolved]
  - Neonatal cholestasis [Unknown]
  - Premature baby [Unknown]
  - Foetal exposure during pregnancy [Recovered/Resolved]
